FAERS Safety Report 18397718 (Version 1)
Quarter: 2020Q4

REPORT INFORMATION
  Report Type: Spontaneous
  Country: US (occurrence: US)
  Receive Date: 20201018
  Receipt Date: 20201018
  Transmission Date: 20210114
  Serious: Yes (Disabling, Other)
  Sender: FDA-Public Use
  Company Number: None

PATIENT
  Age: 27 Year
  Sex: Female
  Weight: 70.31 kg

DRUGS (3)
  1. CLONAZEPAM. [Concomitant]
     Active Substance: CLONAZEPAM
  2. HORMONE ADAPTOGENS [Concomitant]
  3. PARAGARD T 380A [Suspect]
     Active Substance: COPPER
     Dates: start: 20101020, end: 20170725

REACTIONS (8)
  - Complication associated with device [None]
  - Toxicity to various agents [None]
  - Uterine spasm [None]
  - Anxiety [None]
  - Panic attack [None]
  - Intrusive thoughts [None]
  - Mood swings [None]
  - Mental disorder [None]

NARRATIVE: CASE EVENT DATE: 20110510
